FAERS Safety Report 22939049 (Version 4)
Quarter: 2023Q4

REPORT INFORMATION
  Report Type: Spontaneous
  Country: US (occurrence: US)
  Receive Date: 20230913
  Receipt Date: 20231030
  Transmission Date: 20240110
  Serious: Yes (Hospitalization)
  Sender: FDA-Public Use
  Company Number: US-002147023-NVSC2023US197379

PATIENT
  Sex: Female
  Weight: 91.63 kg

DRUGS (2)
  1. LUTATHERA [Suspect]
     Active Substance: LUTETIUM OXODOTREOTIDE LU-177
     Indication: Neuroendocrine tumour
     Dosage: (EVERY 8 WEEKS X 4)
     Route: 042
     Dates: start: 20230328
  2. LUTATHERA [Suspect]
     Active Substance: LUTETIUM OXODOTREOTIDE LU-177
     Dosage: UNK (INJECTION) (RECEIVED 3 DOSES)
     Route: 065

REACTIONS (2)
  - Renal impairment [Unknown]
  - Laboratory test abnormal [Unknown]
